FAERS Safety Report 24991759 (Version 2)
Quarter: 2025Q1

REPORT INFORMATION
  Report Type: Spontaneous
  Country: CA (occurrence: CA)
  Receive Date: 20250220
  Receipt Date: 20250228
  Transmission Date: 20250409
  Serious: Yes (Death, Life-Threatening, Hospitalization, Disabling, Other)
  Sender: SANDOZ
  Company Number: CA-SANDOZ-SDZ2025CA010633

PATIENT
  Age: 43 Year
  Sex: Female
  Weight: 68 kg

DRUGS (139)
  1. ADALIMUMAB [Suspect]
     Active Substance: ADALIMUMAB
     Route: 058
  2. ADALIMUMAB [Suspect]
     Active Substance: ADALIMUMAB
     Indication: Rheumatoid arthritis
     Route: 058
  3. ADALIMUMAB [Suspect]
     Active Substance: ADALIMUMAB
     Route: 058
  4. ADALIMUMAB [Suspect]
     Active Substance: ADALIMUMAB
     Route: 065
  5. ADALIMUMAB [Suspect]
     Active Substance: ADALIMUMAB
     Route: 065
  6. ALENDRONIC ACID [Suspect]
     Active Substance: ALENDRONIC ACID
     Route: 048
  7. ALENDRONIC ACID [Suspect]
     Active Substance: ALENDRONIC ACID
     Route: 048
  8. ALENDRONIC ACID [Suspect]
     Active Substance: ALENDRONIC ACID
     Indication: Rheumatoid arthritis
     Route: 065
  9. ALENDRONIC ACID [Suspect]
     Active Substance: ALENDRONIC ACID
     Route: 065
  10. ALENDRONIC ACID [Suspect]
     Active Substance: ALENDRONIC ACID
     Route: 065
  11. AIMOVIG [Suspect]
     Active Substance: ERENUMAB-AOOE
     Indication: Migraine
     Route: 065
  12. CANDESARTAN [Suspect]
     Active Substance: CANDESARTAN
     Indication: Migraine
     Route: 048
  13. CETIRIZINE [Suspect]
     Active Substance: CETIRIZINE HYDROCHLORIDE
     Dosage: 1 DF, QD
     Route: 065
  14. CETIRIZINE [Suspect]
     Active Substance: CETIRIZINE HYDROCHLORIDE
     Indication: Product used for unknown indication
     Dosage: 3 DF, QD
     Route: 065
  15. COSENTYX [Suspect]
     Active Substance: SECUKINUMAB
     Route: 005
  16. COSENTYX [Suspect]
     Active Substance: SECUKINUMAB
     Indication: Psoriatic arthropathy
     Route: 065
  17. COSENTYX [Suspect]
     Active Substance: SECUKINUMAB
     Indication: Rheumatoid arthritis
     Route: 065
  18. COSENTYX [Suspect]
     Active Substance: SECUKINUMAB
     Route: 065
  19. COSENTYX [Suspect]
     Active Substance: SECUKINUMAB
     Route: 065
  20. COSENTYX [Suspect]
     Active Substance: SECUKINUMAB
     Route: 065
  21. DICLOFENAC POTASSIUM [Suspect]
     Active Substance: DICLOFENAC POTASSIUM
     Indication: Product used for unknown indication
     Route: 065
  22. DICLOFENAC SODIUM [Suspect]
     Active Substance: DICLOFENAC SODIUM
     Indication: Product used for unknown indication
     Route: 065
  23. DICLOFENAC SODIUM [Suspect]
     Active Substance: DICLOFENAC SODIUM
     Route: 047
  24. DICLOFENAC SODIUM [Suspect]
     Active Substance: DICLOFENAC SODIUM
     Route: 058
  25. DICLOFENAC SODIUM [Suspect]
     Active Substance: DICLOFENAC SODIUM
     Route: 065
  26. DOMPERIDONE MALEATE [Suspect]
     Active Substance: DOMPERIDONE MALEATE
     Indication: Product used for unknown indication
     Dosage: 1 DF, QD
     Route: 065
  27. DOMPERIDONE\PANTOPRAZOLE SODIUM [Suspect]
     Active Substance: DOMPERIDONE\PANTOPRAZOLE SODIUM
     Indication: Product used for unknown indication
     Dosage: 1 DF, QOD
     Route: 065
  28. ERELZI [Suspect]
     Active Substance: ETANERCEPT-SZZS
     Indication: Rheumatoid arthritis
     Dosage: 5 MG, QW
     Route: 065
  29. ERELZI [Suspect]
     Active Substance: ETANERCEPT-SZZS
     Route: 065
  30. FOLIC ACID [Suspect]
     Active Substance: FOLIC ACID
     Route: 048
  31. FOLIC ACID [Suspect]
     Active Substance: FOLIC ACID
     Route: 065
  32. FOLIC ACID [Suspect]
     Active Substance: FOLIC ACID
     Indication: Rheumatoid arthritis
     Route: 065
  33. FOLIC ACID [Suspect]
     Active Substance: FOLIC ACID
     Route: 048
  34. FOLIC ACID [Suspect]
     Active Substance: FOLIC ACID
     Route: 048
  35. FOLIC ACID [Suspect]
     Active Substance: FOLIC ACID
     Route: 058
  36. FOLIC ACID [Suspect]
     Active Substance: FOLIC ACID
     Route: 065
  37. FOLIC ACID [Suspect]
     Active Substance: FOLIC ACID
     Route: 065
  38. FOLIC ACID [Suspect]
     Active Substance: FOLIC ACID
     Route: 048
  39. FOLIC ACID [Suspect]
     Active Substance: FOLIC ACID
     Route: 065
  40. FOLIC ACID [Suspect]
     Active Substance: FOLIC ACID
     Route: 048
  41. FOLIC ACID [Suspect]
     Active Substance: FOLIC ACID
     Route: 065
  42. FOLIC ACID [Suspect]
     Active Substance: FOLIC ACID
     Route: 065
  43. FOLIC ACID [Suspect]
     Active Substance: FOLIC ACID
     Dosage: 5 MG, QD
     Route: 065
  44. FOLIC ACID [Suspect]
     Active Substance: FOLIC ACID
     Route: 048
  45. FOLIC ACID [Suspect]
     Active Substance: FOLIC ACID
     Route: 048
  46. FOLIC ACID [Suspect]
     Active Substance: FOLIC ACID
     Route: 065
  47. FOLIC ACID [Suspect]
     Active Substance: FOLIC ACID
     Route: 065
  48. FOLIC ACID [Suspect]
     Active Substance: FOLIC ACID
     Route: 065
  49. FOLIC ACID [Suspect]
     Active Substance: FOLIC ACID
     Route: 048
  50. FOLIC ACID [Suspect]
     Active Substance: FOLIC ACID
     Route: 065
  51. FOLIC ACID [Suspect]
     Active Substance: FOLIC ACID
     Route: 065
  52. FOLIC ACID [Suspect]
     Active Substance: FOLIC ACID
     Route: 065
  53. HYDROCORTISONE [Suspect]
     Active Substance: HYDROCORTISONE
     Indication: Rheumatoid arthritis
     Route: 065
  54. LEFLUNOMIDE [Suspect]
     Active Substance: LEFLUNOMIDE
     Dosage: 10 MG, QD
     Route: 065
  55. LEFLUNOMIDE [Suspect]
     Active Substance: LEFLUNOMIDE
     Route: 048
  56. LEFLUNOMIDE [Suspect]
     Active Substance: LEFLUNOMIDE
     Indication: Rheumatoid arthritis
     Route: 065
  57. LEFLUNOMIDE [Suspect]
     Active Substance: LEFLUNOMIDE
     Route: 065
  58. LEFLUNOMIDE [Suspect]
     Active Substance: LEFLUNOMIDE
     Dosage: UNK, QD
     Route: 065
  59. LEFLUNOMIDE [Suspect]
     Active Substance: LEFLUNOMIDE
     Route: 048
  60. LEFLUNOMIDE [Suspect]
     Active Substance: LEFLUNOMIDE
     Route: 048
  61. LAMICTAL [Suspect]
     Active Substance: LAMOTRIGINE
     Indication: Product used for unknown indication
     Route: 048
  62. METHOTREXATE [Suspect]
     Active Substance: METHOTREXATE
     Dosage: 1 G, QD
     Route: 048
  63. METHOTREXATE [Suspect]
     Active Substance: METHOTREXATE
     Dosage: 1 G, BID
     Route: 048
  64. METHOTREXATE [Suspect]
     Active Substance: METHOTREXATE
     Dosage: 1 G, BID (1 EVERY 0.5 DAYS)
     Route: 048
  65. METHOTREXATE [Suspect]
     Active Substance: METHOTREXATE
     Route: 048
  66. METHOTREXATE [Suspect]
     Active Substance: METHOTREXATE
     Route: 048
  67. METHOTREXATE [Suspect]
     Active Substance: METHOTREXATE
     Dosage: 1 DF, QD
     Route: 048
  68. METHOTREXATE [Suspect]
     Active Substance: METHOTREXATE
     Dosage: 1 DF, QD
     Route: 048
  69. METHOTREXATE [Suspect]
     Active Substance: METHOTREXATE
     Dosage: 15 MG, QW
     Route: 048
  70. METHOTREXATE [Suspect]
     Active Substance: METHOTREXATE
     Dosage: 15 MG, QD
     Route: 048
  71. METHOTREXATE [Suspect]
     Active Substance: METHOTREXATE
     Dosage: 15 MG, QD
     Route: 065
  72. METHOTREXATE [Suspect]
     Active Substance: METHOTREXATE
     Dosage: 2 DF, QD
     Route: 065
  73. METHOTREXATE [Suspect]
     Active Substance: METHOTREXATE
     Dosage: 20 MG, QW
     Route: 013
  74. METHOTREXATE [Suspect]
     Active Substance: METHOTREXATE
     Dosage: 20 MG, QW
     Route: 048
  75. METHOTREXATE [Suspect]
     Active Substance: METHOTREXATE
     Dosage: 20 MG, QW
     Route: 048
  76. METHOTREXATE [Suspect]
     Active Substance: METHOTREXATE
     Dosage: 20 MG, QW
     Route: 065
  77. METHOTREXATE [Suspect]
     Active Substance: METHOTREXATE
     Dosage: 20 MG, QD
     Route: 048
  78. METHOTREXATE [Suspect]
     Active Substance: METHOTREXATE
     Dosage: 20 MG, QD
     Route: 048
  79. METHOTREXATE [Suspect]
     Active Substance: METHOTREXATE
     Dosage: 20 MG, QD
     Route: 048
  80. METHOTREXATE [Suspect]
     Active Substance: METHOTREXATE
     Dosage: 20 MG, QD
     Route: 065
  81. METHOTREXATE [Suspect]
     Active Substance: METHOTREXATE
     Dosage: 20 MG, QD
     Route: 065
  82. METHOTREXATE [Suspect]
     Active Substance: METHOTREXATE
     Route: 048
  83. METHOTREXATE [Suspect]
     Active Substance: METHOTREXATE
     Route: 048
  84. METHOTREXATE [Suspect]
     Active Substance: METHOTREXATE
     Dosage: 25 MG, QW
     Route: 013
  85. METHOTREXATE [Suspect]
     Active Substance: METHOTREXATE
     Dosage: 25 MG, QW
     Route: 013
  86. METHOTREXATE [Suspect]
     Active Substance: METHOTREXATE
     Dosage: 25 MG, QW
     Route: 048
  87. METHOTREXATE [Suspect]
     Active Substance: METHOTREXATE
     Dosage: 25 MG, QW
     Route: 048
  88. METHOTREXATE [Suspect]
     Active Substance: METHOTREXATE
     Dosage: 25 MG, QW
     Route: 048
  89. METHOTREXATE [Suspect]
     Active Substance: METHOTREXATE
     Dosage: 25 MG, QW
     Route: 058
  90. METHOTREXATE [Suspect]
     Active Substance: METHOTREXATE
     Dosage: 25 MG, QD
     Route: 013
  91. METHOTREXATE [Suspect]
     Active Substance: METHOTREXATE
     Dosage: 25 MG, QD
     Route: 042
  92. METHOTREXATE [Suspect]
     Active Substance: METHOTREXATE
     Indication: Psoriatic arthropathy
     Dosage: 25 MG, QD
     Route: 048
  93. METHOTREXATE [Suspect]
     Active Substance: METHOTREXATE
     Dosage: 25 MG, QD
     Route: 048
  94. METHOTREXATE [Suspect]
     Active Substance: METHOTREXATE
     Dosage: 25 MG, BID
     Route: 048
  95. METHOTREXATE [Suspect]
     Active Substance: METHOTREXATE
     Route: 013
  96. METHOTREXATE [Suspect]
     Active Substance: METHOTREXATE
     Route: 013
  97. METHOTREXATE [Suspect]
     Active Substance: METHOTREXATE
     Route: 013
  98. METHOTREXATE [Suspect]
     Active Substance: METHOTREXATE
     Route: 013
  99. METHOTREXATE [Suspect]
     Active Substance: METHOTREXATE
     Route: 048
  100. METHOTREXATE [Suspect]
     Active Substance: METHOTREXATE
     Route: 058
  101. METHOTREXATE [Suspect]
     Active Substance: METHOTREXATE
     Route: 058
  102. METHOTREXATE [Suspect]
     Active Substance: METHOTREXATE
     Route: 065
  103. METHOTREXATE [Suspect]
     Active Substance: METHOTREXATE
     Route: 065
  104. METHOTREXATE [Suspect]
     Active Substance: METHOTREXATE
     Route: 048
  105. METHOTREXATE [Suspect]
     Active Substance: METHOTREXATE
     Dosage: UNK, QD
     Route: 048
  106. METHOTREXATE [Suspect]
     Active Substance: METHOTREXATE
     Route: 016
  107. METHOTREXATE [Suspect]
     Active Substance: METHOTREXATE
     Route: 058
  108. METHOTREXATE [Suspect]
     Active Substance: METHOTREXATE
     Indication: Rheumatoid arthritis
     Route: 065
  109. METHOTREXATE [Suspect]
     Active Substance: METHOTREXATE
     Route: 065
  110. METHOTREXATE [Suspect]
     Active Substance: METHOTREXATE
     Route: 065
  111. METHOTREXATE [Suspect]
     Active Substance: METHOTREXATE
     Route: 001
  112. MYCOPHENOLATE MOFETIL [Suspect]
     Active Substance: MYCOPHENOLATE MOFETIL
     Indication: Product used for unknown indication
     Route: 065
  113. NAPROXEN [Suspect]
     Active Substance: NAPROXEN
     Dosage: 1 DF, BID (1 EVERY 0.5 DAYS)
     Route: 065
  114. NAPROXEN [Suspect]
     Active Substance: NAPROXEN
     Indication: Product used for unknown indication
     Dosage: 2 DF, BID (1 EVERY 0.5 DAYS)
     Route: 065
  115. OXYCODONE HYDROCHLORIDE [Suspect]
     Active Substance: OXYCODONE HYDROCHLORIDE
     Indication: Product used for unknown indication
     Route: 065
  116. OXYCODONE HYDROCHLORIDE [Suspect]
     Active Substance: OXYCODONE HYDROCHLORIDE
     Route: 065
  117. PANTOPRAZOLE SODIUM [Suspect]
     Active Substance: PANTOPRAZOLE SODIUM
     Indication: Dyspepsia
     Route: 065
  118. PANTOPRAZOLE SODIUM [Suspect]
     Active Substance: PANTOPRAZOLE SODIUM
     Route: 005
  119. PANTOPRAZOLE SODIUM [Suspect]
     Active Substance: PANTOPRAZOLE SODIUM
     Route: 005
  120. QUETIAPINE FUMARATE [Suspect]
     Active Substance: QUETIAPINE FUMARATE
     Indication: Product used for unknown indication
     Route: 048
  121. QUETIAPINE FUMARATE [Suspect]
     Active Substance: QUETIAPINE FUMARATE
     Route: 065
  122. RITUXIMAB [Suspect]
     Active Substance: RITUXIMAB
     Route: 065
  123. RITUXIMAB [Suspect]
     Active Substance: RITUXIMAB
     Route: 016
  124. RITUXIMAB [Suspect]
     Active Substance: RITUXIMAB
     Route: 016
  125. RITUXIMAB [Suspect]
     Active Substance: RITUXIMAB
     Route: 016
  126. RITUXIMAB [Suspect]
     Active Substance: RITUXIMAB
     Route: 041
  127. RITUXIMAB [Suspect]
     Active Substance: RITUXIMAB
     Route: 042
  128. RITUXIMAB [Suspect]
     Active Substance: RITUXIMAB
     Route: 042
  129. RITUXIMAB [Suspect]
     Active Substance: RITUXIMAB
     Indication: Rheumatoid arthritis
     Route: 043
  130. RITUXIMAB [Suspect]
     Active Substance: RITUXIMAB
     Route: 058
  131. RITUXIMAB [Suspect]
     Active Substance: RITUXIMAB
     Route: 065
  132. TOPICORT [Suspect]
     Active Substance: DESOXIMETASONE
     Dosage: 1 MG, QD
     Route: 065
  133. TOPICORT [Suspect]
     Active Substance: DESOXIMETASONE
     Dosage: 1 DF, BID (1 EVERY 0.5 DAYS)
     Route: 065
  134. TOPICORT [Suspect]
     Active Substance: DESOXIMETASONE
     Dosage: 25 MG, BID (1 EVERY 0.5 DAYS)
     Route: 065
  135. TOPICORT [Suspect]
     Active Substance: DESOXIMETASONE
     Route: 065
  136. TOPICORT [Suspect]
     Active Substance: DESOXIMETASONE
     Indication: Product used for unknown indication
     Dosage: 3 MG, QD
     Route: 065
  137. TOPICORT [Suspect]
     Active Substance: DESOXIMETASONE
     Dosage: 3 MG, QD
     Route: 065
  138. TRAZODONE [Suspect]
     Active Substance: TRAZODONE HYDROCHLORIDE
     Indication: Product used for unknown indication
     Dosage: 2 DF, QD
     Route: 065
  139. VOLTAREN [Suspect]
     Active Substance: DICLOFENAC SODIUM
     Indication: Product used for unknown indication
     Route: 065

REACTIONS (10)
  - Synovitis [Fatal]
  - Systemic lupus erythematosus [Fatal]
  - Type 2 diabetes mellitus [Fatal]
  - Wheezing [Fatal]
  - Wound [Fatal]
  - Live birth [Fatal]
  - Wound infection [Fatal]
  - Maternal exposure during pregnancy [Fatal]
  - Intentional product use issue [Fatal]
  - Swelling [Fatal]
